FAERS Safety Report 4627300-4 (Version None)
Quarter: 2005Q2

REPORT INFORMATION
  Report Type: 
  Country: None (occurrence: None)
  Receive Date: 20050405
  Receipt Date: 20040811
  Transmission Date: 20051028
  Serious: Yes (Hospitalization)
  Sender: FDA-Public Use
  Company Number: NL-2004-BP-06693BP

PATIENT
  Sex: Male
  Weight: 82 kg

DRUGS (11)
  1. MICARDIS [Suspect]
     Indication: CARDIOVASCULAR DISORDER
     Dates: start: 20020314
  2. MICARDIS [Suspect]
     Indication: CEREBROVASCULAR ACCIDENT PROPHYLAXIS
  3. RAMIPRIL [Suspect]
     Indication: CARDIOVASCULAR DISORDER
     Route: 048
     Dates: start: 20020314
  4. RAMIPRIL [Suspect]
     Indication: CEREBROVASCULAR ACCIDENT PROPHYLAXIS
  5. DICLOFENAC SODIUM [Suspect]
     Dates: end: 20040804
  6. LIPITOR [Concomitant]
  7. OXAZEPAM [Concomitant]
  8. SELOKEEN ZOC [Concomitant]
  9. REMERON [Concomitant]
  10. TRAMADOL HCL [Concomitant]
  11. AUGMENTIN '125' [Concomitant]

REACTIONS (3)
  - PNEUMONIA [None]
  - PULMONARY EMBOLISM [None]
  - RENAL FAILURE [None]
